FAERS Safety Report 9722825 (Version 1)
Quarter: 2013Q4

REPORT INFORMATION
  Report Type: Spontaneous
  Country: US (occurrence: None)
  Receive Date: 20131127
  Receipt Date: 20131127
  Transmission Date: 20140711
  Serious: No
  Sender: FDA-Public Use
  Company Number: None

PATIENT
  Age: 51 Year
  Sex: Male
  Weight: 77.2 kg

DRUGS (4)
  1. 5-FLUOROURACIL [Suspect]
  2. XELODA [Suspect]
  3. DOCETAXEL [Suspect]
  4. OXALIPLATIN [Suspect]

REACTIONS (2)
  - Oesophagectomy [None]
  - Thoracotomy [None]
